FAERS Safety Report 8025432 (Version 3)
Quarter: 2014Q1

REPORT INFORMATION
  Report Type: Report from Study
  Country: DE (occurrence: DE)
  Receive Date: 20110707
  Receipt Date: 20140117
  Transmission Date: 20141002
  Serious: Yes (Other)
  Sender: FDA-Public Use
  Company Number: DE-JNJFOC-20110612836

PATIENT
  Age: 70 Year
  Sex: Male
  Weight: 99 kg

DRUGS (7)
  1. USTEKINUMAB [Suspect]
     Indication: PSORIASIS
     Route: 058
     Dates: start: 20090420, end: 20090519
  2. USTEKINUMAB [Suspect]
     Indication: PSORIASIS
     Route: 058
     Dates: start: 20090519, end: 20101109
  3. ETANERCEPT [Suspect]
     Indication: PSORIASIS
     Route: 058
     Dates: start: 200707, end: 200902
  4. ALLOPURINOL [Concomitant]
     Route: 048
  5. L-THYROXIN [Concomitant]
     Route: 048
  6. RAMIPRIL [Concomitant]
     Dosage: 5/12.5
     Route: 048
  7. PENTALONG [Concomitant]

REACTIONS (1)
  - B-cell lymphoma [Recovered/Resolved]
